FAERS Safety Report 7166806-3 (Version None)
Quarter: 2010Q4

REPORT INFORMATION
  Report Type: 
  Country: None (occurrence: None)
  Receive Date: 20101216
  Receipt Date: 20101210
  Transmission Date: 20110411
  Serious: Yes (Hospitalization)
  Sender: FDA-Public Use
  Company Number: GB-ROCHE-747901

PATIENT
  Sex: Female
  Weight: 54.7 kg

DRUGS (6)
  1. TRASTUZUMAB [Suspect]
     Dosage: LOADING DOSE.
     Route: 042
     Dates: start: 20100907
  2. TRASTUZUMAB [Suspect]
     Dosage: LOADING DOSE. TOTAL DOSE 357 MG, FORM: VIAL, LAST DOSE PRIOR TO SAE: 02 DECEMBER 2010
     Route: 042
     Dates: start: 20100928
  3. BEVACIZUMAB [Suspect]
     Dosage: TOTAL DOSE 850 MG, FORM VIAL, LAST DOSE PRIOR TO SAE ON 02 DECEMBER 2010
     Route: 042
     Dates: start: 20100907
  4. CARBOPLATIN [Suspect]
     Dosage: FROM: VIAL, TOTAL DOSE 590 MG, LAST DOSE PRIOR TO SAE ON 02 DECEMBER 2010, DOSE LEVEL 6 AUC
     Route: 042
     Dates: start: 20100907
  5. DOCETAXEL [Suspect]
     Dosage: FORM:VIALS, LAST DOSE PRIOR TO SAE ON 02 DECEMBER 2010, TOTAL DOSE :120 MG
     Route: 042
     Dates: start: 20100907
  6. METOCLOPRAMIDE [Concomitant]
     Dates: start: 20100907

REACTIONS (1)
  - RECTAL HAEMORRHAGE [None]
